FAERS Safety Report 8018750-7 (Version None)
Quarter: 2012Q1

REPORT INFORMATION
  Report Type: 
  Country: None (occurrence: None)
  Receive Date: 20120103
  Receipt Date: 20120103
  Transmission Date: 20120608
  Serious: Yes (Other)
  Sender: FDA-Public Use
  Company Number: None

PATIENT
  Age: 66 Year
  Sex: Male
  Weight: 131.54 kg

DRUGS (2)
  1. FLUTICASONE PROPIONATE [Suspect]
     Indication: UPPER-AIRWAY COUGH SYNDROME
     Dosage: 50MCG
     Route: 045
     Dates: start: 20110805, end: 20111220
  2. FLUTICASONE PROPIONATE [Suspect]
     Indication: INSOMNIA
     Dosage: 50MCG
     Route: 045
     Dates: start: 20110805, end: 20111220

REACTIONS (2)
  - DRUG INEFFECTIVE [None]
  - PRODUCT SUBSTITUTION ISSUE [None]
